FAERS Safety Report 8596022-X (Version None)
Quarter: 2012Q3

REPORT INFORMATION
  Report Type: 
  Country: None (occurrence: None)
  Receive Date: 20120815
  Receipt Date: 19911011
  Transmission Date: 20120928
  Serious: Yes (Hospitalization)
  Sender: FDA-Public Use
  Company Number: US-ROCHE-1101377

PATIENT
  Age: 61 Year
  Sex: Female

DRUGS (4)
  1. LIDOCAINE [Concomitant]
     Dosage: 4 MG PER MINUTE
     Route: 041
  2. POTASSIUM CHLORIDE [Concomitant]
     Route: 042
  3. ASA SUPPOSITORY [Concomitant]
     Route: 065
  4. ACTIVASE [Suspect]
     Indication: ACUTE MYOCARDIAL INFARCTION
     Dosage: 10 INITALLY, 30 MG FIRST TIME, 30 MG SECOND TIME AND LAST 30 MG AFTER 2 HOURS
     Route: 040

REACTIONS (2)
  - MUSCULOSKELETAL PAIN [None]
  - PAIN [None]
